FAERS Safety Report 19803099 (Version 1)
Quarter: 2021Q3

REPORT INFORMATION
  Report Type: Spontaneous
  Country: GB (occurrence: GB)
  Receive Date: 20210908
  Receipt Date: 20210908
  Transmission Date: 20211014
  Serious: Yes (Death)
  Sender: FDA-Public Use
  Company Number: GB-ASSERTIO THERAPEUTICS, INC.-GB-2021AST000163

PATIENT
  Sex: Female

DRUGS (1)
  1. INDOMETHACIN SUPPOSITORIES [Suspect]
     Active Substance: INDOMETHACIN
     Indication: PROLONGED PREGNANCY
     Dosage: UNK

REACTIONS (2)
  - Pneumothorax [Fatal]
  - Sepsis [Fatal]
